FAERS Safety Report 15487980 (Version 1)
Quarter: 2018Q4

REPORT INFORMATION
  Report Type: Spontaneous
  Country: US (occurrence: US)
  Receive Date: 20181003
  Receipt Date: 20181003
  Transmission Date: 20190205
  Serious: Yes (Life-Threatening, Hospitalization)
  Sender: FDA-Public Use
  Company Number: None

PATIENT
  Age: 44 Year
  Sex: Male
  Weight: 95 kg

DRUGS (1)
  1. ALEMTUZUMAB [Suspect]
     Active Substance: ALEMTUZUMAB
     Indication: MULTIPLE SCLEROSIS
     Route: 042
     Dates: start: 20180910, end: 20180910

REACTIONS (18)
  - Muscle spasms [None]
  - Neutrophil count increased [None]
  - Screaming [None]
  - Alanine aminotransferase increased [None]
  - Blood lactic acid increased [None]
  - White blood cell count increased [None]
  - Gamma-glutamyltransferase increased [None]
  - Agitation [None]
  - Chills [None]
  - Pain [None]
  - Angina pectoris [None]
  - Back pain [None]
  - Blood lactate dehydrogenase increased [None]
  - Chest discomfort [None]
  - Dyspnoea [None]
  - Tachycardia [None]
  - Aspartate aminotransferase increased [None]
  - Blood creatine phosphokinase increased [None]

NARRATIVE: CASE EVENT DATE: 20180910
